FAERS Safety Report 18641485 (Version 2)
Quarter: 2020Q4

REPORT INFORMATION
  Report Type: Report from Study
  Country: IT (occurrence: IT)
  Receive Date: 20201221
  Receipt Date: 20201228
  Transmission Date: 20210114
  Serious: Yes (Hospitalization)
  Sender: FDA-Public Use
  Company Number: IT-EMD SERONO-E2B_90081683

PATIENT
  Sex: Female
  Weight: 90 kg

DRUGS (1)
  1. MAVENCLAD [Suspect]
     Active Substance: CLADRIBINE
     Indication: MULTIPLE SCLEROSIS
     Route: 048
     Dates: start: 20201105, end: 20201109

REACTIONS (8)
  - Anosmia [Recovering/Resolving]
  - Asthenia [Recovering/Resolving]
  - COVID-19 pneumonia [Recovering/Resolving]
  - Lymphopenia [Recovering/Resolving]
  - Interstitial lung disease [Recovering/Resolving]
  - Pyrexia [Recovering/Resolving]
  - Dysgeusia [Recovering/Resolving]
  - Neutropenia [Recovering/Resolving]

NARRATIVE: CASE EVENT DATE: 20201110
